FAERS Safety Report 9412057 (Version 1)
Quarter: 2013Q3

REPORT INFORMATION
  Report Type: Spontaneous
  Country: US (occurrence: US)
  Receive Date: 20130722
  Receipt Date: 20130722
  Transmission Date: 20140515
  Serious: Yes (Other)
  Sender: FDA-Public Use
  Company Number: US-MERCK-1307USA010964

PATIENT
  Age: 1 Day
  Sex: Male
  Weight: 2.19 kg

DRUGS (4)
  1. ISENTRESS [Suspect]
     Indication: ACUTE HIV INFECTION
     Dosage: COURSE:1, TOTAL DAILY DOSE:800 MG/DAY
     Route: 064
     Dates: start: 20121018, end: 20130125
  2. NORVIR [Suspect]
     Indication: ACUTE HIV INFECTION
     Dosage: COURSE:1, TOTAL DAILY DOSE:100 MG/DAY
     Route: 064
     Dates: start: 20121012, end: 20121018
  3. REYATAZ [Suspect]
     Indication: ACUTE HIV INFECTION
     Dosage: COURSE:1, TOTAL DAILY DOSE:300 MG
     Route: 064
     Dates: start: 20121012, end: 20121018
  4. TRUVADA [Suspect]
     Indication: ACUTE HIV INFECTION
     Dosage: COURSE:1,TOTAL DAILY DOSE: 1TAB/CAPS
     Route: 064
     Dates: start: 20121012, end: 20130125

REACTIONS (2)
  - Foetal death [Unknown]
  - Foetal exposure during pregnancy [Recovered/Resolved]
